FAERS Safety Report 13727132 (Version 1)
Quarter: 2017Q3

REPORT INFORMATION
  Report Type: Spontaneous
  Country: GB (occurrence: GB)
  Receive Date: 20170706
  Receipt Date: 20170706
  Transmission Date: 20171127
  Serious: Yes (Congenital Anomaly, Other)
  Sender: FDA-Public Use
  Company Number: GB-ABBVIE-17P-167-2029195-00

PATIENT
  Sex: Male

DRUGS (1)
  1. SODIUM VALPROATE [Suspect]
     Active Substance: VALPROATE SODIUM
     Indication: PRODUCT USED FOR UNKNOWN INDICATION
     Route: 064

REACTIONS (13)
  - Craniosynostosis [Unknown]
  - Respiratory distress [Recovered/Resolved]
  - Pulmonary valve stenosis [Unknown]
  - Lip disorder [Unknown]
  - Foetal anticonvulsant syndrome [Unknown]
  - Hypospadias [Unknown]
  - Congenital cutis laxa [Unknown]
  - Lower respiratory tract infection [Recovered/Resolved]
  - Low set ears [Unknown]
  - Nose deformity [Unknown]
  - Foetal exposure during pregnancy [Unknown]
  - Cardiac murmur [Unknown]
  - Right ventricular hypertrophy [Unknown]
